FAERS Safety Report 6114595-3 (Version None)
Quarter: 2009Q1

REPORT INFORMATION
  Report Type: 
  Country: None (occurrence: None)
  Receive Date: 20090313
  Receipt Date: 20090310
  Transmission Date: 20090719
  Serious: Yes (Other)
  Sender: FDA-Public Use
  Company Number: US-BAYER-200910923NA

PATIENT
  Age: 32 Year
  Sex: Female
  Weight: 90 kg

DRUGS (5)
  1. MIRENA [Suspect]
     Indication: CONTRACEPTION
     Route: 015
     Dates: start: 20080425
  2. ALBUTEROL [Concomitant]
  3. FLOVENT [Concomitant]
  4. SINGULAIR [Concomitant]
  5. ZYRTEC [Concomitant]

REACTIONS (3)
  - BREAST INDURATION [None]
  - BREAST PAIN [None]
  - BREAST TENDERNESS [None]
